FAERS Safety Report 4828492-4 (Version None)
Quarter: 2005Q4

REPORT INFORMATION
  Report Type: 
  Country: None (occurrence: None)
  Receive Date: 20051115
  Receipt Date: 20051104
  Transmission Date: 20060501
  Serious: Yes (Other)
  Sender: FDA-Public Use
  Company Number: US-ROCHE-423982

PATIENT
  Age: 15 Year
  Sex: Female
  Weight: 72.6 kg

DRUGS (2)
  1. ACCUTANE [Suspect]
     Route: 048
     Dates: start: 19980615, end: 20000615
  2. MIRCETTE [Concomitant]
     Route: 048

REACTIONS (5)
  - ACNE [None]
  - DEPRESSION [None]
  - DRY SKIN [None]
  - LIP DRY [None]
  - SUICIDE ATTEMPT [None]
